FAERS Safety Report 4633184-0 (Version None)
Quarter: 2005Q2

REPORT INFORMATION
  Report Type: 
  Country: None (occurrence: None)
  Receive Date: 20050408
  Receipt Date: 20050405
  Transmission Date: 20051028
  Serious: Yes (Death)
  Sender: FDA-Public Use
  Company Number: A500525410/PHRM2005FRO1203

PATIENT
  Age: 84 Year
  Sex: Female

DRUGS (1)
  1. AK-FLUOR 10%, AKORN [Suspect]
     Indication: ANGIOGRAM RETINA
     Dosage: INTRAVENOUS
     Route: 042
     Dates: start: 20041122, end: 20041122

REACTIONS (3)
  - CHEST PAIN [None]
  - FEELING ABNORMAL [None]
  - PULSE ABNORMAL [None]
